FAERS Safety Report 7300847-8 (Version None)
Quarter: 2011Q1

REPORT INFORMATION
  Report Type: 
  Country: None (occurrence: None)
  Receive Date: 20110103
  Receipt Date: 20100406
  Transmission Date: 20110831
  Serious: Yes (Hospitalization)
  Sender: FDA-Public Use
  Company Number: US-004293

PATIENT
  Sex: Male

DRUGS (6)
  1. EOVIST [Suspect]
     Indication: METASTASES TO LIVER
     Dosage: 6ML ONCE INTRAVENOUS
     Route: 042
     Dates: start: 20100325, end: 20100325
  2. EOVIST [Suspect]
     Indication: NUCLEAR MAGNETIC RESONANCE IMAGING
     Dosage: 6ML ONCE INTRAVENOUS
     Route: 042
     Dates: start: 20100325, end: 20100325
  3. MELPHALAN HYDROCHLORIDE [Concomitant]
  4. MULTIHANCE [Suspect]
     Indication: METASTASES TO LIVER
     Dosage: 2ML ONCE INTRAVENOUS
     Route: 042
     Dates: start: 20100325, end: 20100325
  5. MULTIHANCE [Suspect]
     Indication: NUCLEAR MAGNETIC RESONANCE IMAGING
     Dosage: 2ML ONCE INTRAVENOUS
     Route: 042
     Dates: start: 20100325, end: 20100325
  6. FUROSEMIDE [Concomitant]

REACTIONS (1)
  - HYPERBILIRUBINAEMIA [None]
